FAERS Safety Report 4790245-3 (Version None)
Quarter: 2005Q4

REPORT INFORMATION
  Report Type: 
  Country: None (occurrence: None)
  Receive Date: 20051006
  Receipt Date: 20050928
  Transmission Date: 20060501
  Serious: Yes (Hospitalization)
  Sender: FDA-Public Use
  Company Number: 200513194FR

PATIENT
  Age: 23 Year
  Sex: Female
  Weight: 108 kg

DRUGS (1)
  1. AMAREL [Suspect]
     Indication: DIABETES MELLITUS NON-INSULIN-DEPENDENT
     Route: 048
     Dates: start: 20040101, end: 20050615

REACTIONS (2)
  - DRUG EXPOSURE DURING PREGNANCY [None]
  - MICROCEPHALY [None]
